FAERS Safety Report 17835436 (Version 1)
Quarter: 2020Q2

REPORT INFORMATION
  Report Type: Spontaneous
  Country: US (occurrence: US)
  Receive Date: 20200528
  Receipt Date: 20200528
  Transmission Date: 20200714
  Serious: Yes (Hospitalization, Other)
  Sender: FDA-Public Use
  Company Number: US-PFIZER INC-2020209432

PATIENT
  Age: 74 Year
  Sex: Female
  Weight: 68.04 kg

DRUGS (1)
  1. PRISTIQ EXTENDED-RELEASE [Suspect]
     Active Substance: DESVENLAFAXINE SUCCINATE
     Indication: DEPRESSION
     Dosage: 100 MG, 1X/DAY
     Route: 048

REACTIONS (4)
  - Herpes zoster [Unknown]
  - Road traffic accident [Unknown]
  - Drug dependence [Unknown]
  - Neck pain [Unknown]
